FAERS Safety Report 15990563 (Version 2)
Quarter: 2019Q1

REPORT INFORMATION
  Report Type: Report from Study
  Country: US (occurrence: US)
  Receive Date: 20190221
  Receipt Date: 20190228
  Transmission Date: 20190418
  Serious: Yes (Hospitalization)
  Sender: FDA-Public Use
  Company Number: US-BRISTOL-MYERS SQUIBB COMPANY-BMS-2019-016436

PATIENT
  Age: 60 Year
  Sex: Male
  Weight: 117.9 kg

DRUGS (2)
  1. NIVOLUMAB [Suspect]
     Active Substance: NIVOLUMAB
     Indication: SQUAMOUS CELL CARCINOMA OF HEAD AND NECK
     Dosage: 100 MG, Q2WK
     Route: 042
     Dates: start: 20181109
  2. LIRILUMAB [Suspect]
     Active Substance: LIRILUMAB
     Indication: SQUAMOUS CELL CARCINOMA OF HEAD AND NECK
     Dosage: 100 MG, Q4WK
     Route: 042
     Dates: start: 20181109

REACTIONS (1)
  - Dysphagia [Recovering/Resolving]

NARRATIVE: CASE EVENT DATE: 20190130
